FAERS Safety Report 21418415 (Version 1)
Quarter: 2022Q4

REPORT INFORMATION
  Report Type: Spontaneous
  Country: DE (occurrence: DE)
  Receive Date: 20221006
  Receipt Date: 20221006
  Transmission Date: 20230113
  Serious: Yes (Hospitalization, Other)
  Sender: FDA-Public Use
  Company Number: DE-ADRED-07588-01

PATIENT
  Age: 54 Year
  Sex: Female
  Weight: 49 kg

DRUGS (20)
  1. LERCANIDIPINE [Suspect]
     Active Substance: LERCANIDIPINE
     Indication: Product used for unknown indication
     Dosage: 10 MILLIGRAM DAILY; 10 MG, 1-0-0-0
  2. CLONIDINE [Suspect]
     Active Substance: CLONIDINE
     Indication: Product used for unknown indication
     Dosage: 150 MICROGRAM DAILY; 75 UG, 1-0-1-0
  3. NEBIVOLOL [Suspect]
     Active Substance: NEBIVOLOL
     Indication: Product used for unknown indication
     Dosage: 10 MILLIGRAM DAILY; 5 MG, 1-0-1-0
  4. CANDESARTAN [Suspect]
     Active Substance: CANDESARTAN
     Indication: Product used for unknown indication
     Dosage: 15 MILLIGRAM DAILY; 15 MG, 0-0-0-1
  5. INSULIN ASPART [Suspect]
     Active Substance: INSULIN ASPART
     Indication: Product used for unknown indication
     Dosage: 18 DOSAGE FORMS DAILY; 300 IU/3ML, 6-6-6-0, PRE-FILLED SYRINGES
  6. INSULIN GLARGINE [Suspect]
     Active Substance: INSULIN GLARGINE
     Indication: Product used for unknown indication
     Dosage: 20 DOSAGE FORMS DAILY; 300 IU/3ML, 0-0-0-20, PRE-FILLED SYRINGES
  7. ALLOPURINOL [Concomitant]
     Active Substance: ALLOPURINOL
     Indication: Product used for unknown indication
     Dosage: 100 MILLIGRAM DAILY; 100 MG, 1-0-0-0
  8. EPLERENONE [Concomitant]
     Active Substance: EPLERENONE
     Indication: Product used for unknown indication
     Dosage: 25 MILLIGRAM DAILY; 25 MG, 1-0-0-0
  9. LEVOTHYROXINE SODIUM [Concomitant]
     Active Substance: LEVOTHYROXINE SODIUM
     Indication: Product used for unknown indication
     Dosage: 88 MICROGRAM DAILY; 88 UG, 1-0-0-0,  LEVOTHYROXIN-NATRIUM
  10. PANTOPRAZOLE [Concomitant]
     Active Substance: PANTOPRAZOLE
     Indication: Product used for unknown indication
     Dosage: 40 MILLIGRAM DAILY; 40 MG, 1-0-0-0,
  11. SODIUM BICARBONATE [Concomitant]
     Active Substance: SODIUM BICARBONATE
     Indication: Product used for unknown indication
     Dosage: 3 GRAM DAILY; 1 G, 1-1-1-0, NATRIUMHYDROGENCARBONAT
  12. ATORVASTATIN [Concomitant]
     Active Substance: ATORVASTATIN
     Indication: Product used for unknown indication
     Dosage: 40 MILLIGRAM DAILY; 40 MG, 0-0-1-0
  13. SEVELAMER [Concomitant]
     Active Substance: SEVELAMER
     Indication: Product used for unknown indication
     Dosage: 6 DOSAGE FORMS DAILY; 800 MG, 2-2-2-0
  14. ALFACALCIDOL [Concomitant]
     Active Substance: ALFACALCIDOL
     Indication: Product used for unknown indication
     Dosage: .25 MICROGRAM DAILY; 0.25 UG, 0-0-1-0,
  15. TORSEMIDE [Concomitant]
     Active Substance: TORSEMIDE
     Indication: Product used for unknown indication
     Dosage: 200 MILLIGRAM DAILY; 200 MG, 1-0-0-0,
  16. colecalciferol  (Vitamin D) [Concomitant]
     Indication: Product used for unknown indication
     Dosage: 20000 IE,SATURDAYS, CAPSULES
  17. EPOETIN ALFA [Concomitant]
     Active Substance: ERYTHROPOIETIN
     Indication: Product used for unknown indication
     Dosage: MONDAYS, PRE-FILLED SYRINGES ,  6000 IU/0.6 ML
  18. CALCIUM ACETATE\MAGNESIUM CARBONATE [Concomitant]
     Active Substance: CALCIUM ACETATE\MAGNESIUM CARBONATE
     Indication: Product used for unknown indication
     Dosage: 3 DOSAGE FORMS DAILY; 1-1-1-0,   435MG/235MG
  19. selenase [Concomitant]
     Indication: Product used for unknown indication
     Dosage: 100 MICROGRAM DAILY; 100 UG, 1-0-0-0 , AMPOULES , FORM STRENGTH : 100 MICROGRAM
     Route: 048
  20. milgamma [Concomitant]
     Indication: Product used for unknown indication
     Dosage: 1 DOSAGE FORMS DAILY; 1-0-0-0 , FORM STRENGTH : 300 MG

REACTIONS (5)
  - Fall [Unknown]
  - Pain [Unknown]
  - Syncope [Unknown]
  - Therapeutic drug monitoring analysis not performed [Unknown]
  - Therapeutic drug monitoring analysis incorrectly performed [Unknown]
